FAERS Safety Report 6589721-2 (Version None)
Quarter: 2010Q1

REPORT INFORMATION
  Report Type: 
  Country: None (occurrence: None)
  Receive Date: 20100212
  Receipt Date: 20100205
  Transmission Date: 20100710
  Serious: Yes (Disabling, Other)
  Sender: FDA-Public Use
  Company Number: IDR-00349

PATIENT
  Age: 15 Year
  Sex: Female

DRUGS (8)
  1. INDERAL LA (PROPRANOLOL HYDROCHLORIDE) LONG-ACTING CAPSULE [Suspect]
     Indication: ANHIDROSIS
     Dosage: 80 MG BID
  2. INDERAL LA (PROPRANOLOL HYDROCHLORIDE) LONG-ACTING CAPSULE [Suspect]
     Indication: AUTONOMIC NEUROPATHY
     Dosage: 80 MG BID
  3. INDERAL LA (PROPRANOLOL HYDROCHLORIDE) LONG-ACTING CAPSULE [Suspect]
     Indication: SYNCOPE
     Dosage: 80 MG BID
  4. PROPRANOLOL EXTENDED RELEASE, 80 MG [Suspect]
     Indication: ANHIDROSIS
     Dosage: 80 MG
  5. PROPRANOLOL EXTENDED RELEASE, 80 MG [Suspect]
     Indication: AUTONOMIC NEUROPATHY
     Dosage: 80 MG
  6. PROPRANOLOL EXTENDED RELEASE, 80 MG [Suspect]
     Indication: SYNCOPE
     Dosage: 80 MG
  7. BIRTH CONTROL PILL [Concomitant]
  8. ANTIBIOTIC (UNKNOWN BRAND) [Concomitant]

REACTIONS (6)
  - CARDIAC ARREST [None]
  - FALL [None]
  - HEART RATE DECREASED [None]
  - HEART RATE IRREGULAR [None]
  - LOSS OF CONSCIOUSNESS [None]
  - PRODUCT SUBSTITUTION ISSUE [None]
